FAERS Safety Report 10273670 (Version 1)
Quarter: 2014Q3

REPORT INFORMATION
  Report Type: Spontaneous
  Country: FR (occurrence: FR)
  Receive Date: 20140702
  Receipt Date: 20140702
  Transmission Date: 20150326
  Serious: Yes (Hospitalization)
  Sender: FDA-Public Use
  Company Number: FR-EISAI INC-E2080-00742-SPO-FR

PATIENT
  Age: 2 Year
  Sex: Female
  Weight: 13.6 kg

DRUGS (8)
  1. LEVOCARNIL [Concomitant]
     Active Substance: LEVOCARNITINE
     Route: 048
     Dates: start: 2013, end: 201405
  2. RIVOTRIL [Concomitant]
     Active Substance: CLONAZEPAM
     Indication: CONVULSION
     Route: 048
     Dates: start: 2013, end: 20140512
  3. GARDENAL [Suspect]
     Active Substance: PHENOBARBITAL
     Indication: CONVULSION
     Dosage: UNKNOWN
     Route: 048
     Dates: start: 201402, end: 20140512
  4. ARTANE [Concomitant]
     Active Substance: TRIHEXYPHENIDYL HYDROCHLORIDE
     Dosage: 280 MG (2X7 DROPS)
     Route: 048
     Dates: start: 201302, end: 20140512
  5. INOVELON [Suspect]
     Active Substance: RUFINAMIDE
     Indication: CONVULSION
     Route: 048
     Dates: start: 201404, end: 20140512
  6. LAROXYL [Concomitant]
     Active Substance: AMITRIPTYLINE
     Dosage: 18 MG (9 DROPS)
     Route: 048
     Dates: start: 201302, end: 20140512
  7. INEXIUM [Concomitant]
     Active Substance: ESOMEPRAZOLE
     Route: 048
     Dates: start: 201302, end: 20140512
  8. AUGMENTIN [Suspect]
     Active Substance: AMOXICILLIN\CLAVULANATE POTASSIUM
     Indication: EAR INFECTION
     Route: 048
     Dates: start: 20140508, end: 20140512

REACTIONS (5)
  - Cholestasis [Recovered/Resolved]
  - Hepatitis fulminant [Recovered/Resolved]
  - Ear infection [Recovered/Resolved]
  - Acute hepatic failure [Recovered/Resolved]
  - Off label use [Recovered/Resolved]

NARRATIVE: CASE EVENT DATE: 20140508
